FAERS Safety Report 17524345 (Version 1)
Quarter: 2020Q1

REPORT INFORMATION
  Report Type: Spontaneous
  Country: GB (occurrence: GB)
  Receive Date: 20200311
  Receipt Date: 20200311
  Transmission Date: 20200409
  Serious: Yes (Other)
  Sender: FDA-Public Use
  Company Number: GB-TEVA-2020-GB-1196433

PATIENT
  Age: 84 Year
  Sex: Female

DRUGS (1)
  1. RIVASTIGMINE. [Suspect]
     Active Substance: RIVASTIGMINE
     Route: 065

REACTIONS (7)
  - Hallucination [Unknown]
  - Malaise [Unknown]
  - Skin reaction [Unknown]
  - Decreased appetite [Unknown]
  - Anxiety [Unknown]
  - Blood pressure fluctuation [Unknown]
  - Heart rate irregular [Unknown]
